FAERS Safety Report 23134053 (Version 2)
Quarter: 2023Q4

REPORT INFORMATION
  Report Type: Report from Study
  Country: DE (occurrence: DE)
  Receive Date: 20231101
  Receipt Date: 20231121
  Transmission Date: 20240110
  Serious: Yes (Hospitalization, Other)
  Sender: FDA-Public Use
  Company Number: DE-002147023-NVSC2023DE200768

PATIENT
  Age: 72 Year
  Sex: Female
  Weight: 86 kg

DRUGS (24)
  1. LEQVIO [Suspect]
     Active Substance: INCLISIRAN SODIUM
     Indication: Hyperlipidaemia
     Dosage: 284 MG
     Route: 058
     Dates: start: 20220503
  2. LEQVIO [Suspect]
     Active Substance: INCLISIRAN SODIUM
     Dosage: UNK
     Route: 058
     Dates: start: 20230120
  3. ASPIRIN [Concomitant]
     Active Substance: ASPIRIN
     Indication: Cardiovascular disorder
     Dosage: 100 MG, QD
     Route: 048
     Dates: start: 2018
  4. ANASTROZOLE [Concomitant]
     Active Substance: ANASTROZOLE
     Indication: Breast cancer
     Dosage: 1 MG, QD (STARTED BEFORE LEQVIO)
     Route: 048
     Dates: start: 2018
  5. BEMPEDOIC ACID [Concomitant]
     Active Substance: BEMPEDOIC ACID
     Indication: Product used for unknown indication
     Dosage: 180 MG, QD
     Route: 048
  6. BISOPROLOL [Concomitant]
     Active Substance: BISOPROLOL\BISOPROLOL FUMARATE
     Indication: Hypertension
     Dosage: 5 MG, BID (1-0-0.5)
     Route: 048
     Dates: start: 2018
  7. VIGANTOL [Concomitant]
     Indication: Vitamin D deficiency
     Dosage: 1000 IU, QD (BEFORE LEQVIO)
     Route: 048
  8. EPLERENONE [Concomitant]
     Active Substance: EPLERENONE
     Indication: Cardiac failure
     Dosage: 25 MG, QD (NOON)
     Route: 048
     Dates: start: 2020, end: 2022
  9. EPLERENONE [Concomitant]
     Active Substance: EPLERENONE
     Indication: Product used for unknown indication
     Dosage: 25 MG, QD
     Route: 048
     Dates: end: 20230824
  10. LEVOTHYROXINE [Concomitant]
     Active Substance: LEVOTHYROXINE
     Indication: Hypothyroidism
     Dosage: 150 UG, QD (PRIOR TO 2018)
     Route: 048
  11. METAMIZOLE [Concomitant]
     Active Substance: METAMIZOLE
     Indication: Pain
     Dosage: 500 MG, PRN (MAX 8 DF PER 24 H)
     Route: 048
  12. MIRTAZAPINE [Concomitant]
     Active Substance: MIRTAZAPINE
     Indication: Insomnia
     Dosage: 0.5 DOSAGE FORM, QD (AT NIGHT) (STARTED BEFORE LEQVIO)
     Route: 048
     Dates: end: 20230104
  13. MIRTAZAPINE [Concomitant]
     Active Substance: MIRTAZAPINE
     Indication: Restlessness
     Dosage: 0.5 DOSAGE FORM, PRN (MAX 1 DF PER 24 H)
     Route: 048
  14. OLMESARTAN [Concomitant]
     Active Substance: OLMESARTAN
     Indication: Hypertension
     Dosage: 10 MG, QD
     Route: 048
     Dates: start: 202308
  15. OLMESARTAN [Concomitant]
     Active Substance: OLMESARTAN
     Indication: Hypertension
     Dosage: 0.5 DOSAGE FORM, QD (BEFORE LEQVIO)
     Route: 048
     Dates: end: 202308
  16. PANTOZOL [Concomitant]
     Active Substance: PANTOPRAZOLE SODIUM
     Indication: Gastrointestinal disorder
     Dosage: 40 MG, QD (PRIOR TO 2018))
     Route: 048
  17. EZETIMIBE [Concomitant]
     Active Substance: EZETIMIBE
     Indication: Hyperlipidaemia
     Dosage: 180 MG
     Route: 048
     Dates: start: 20200701, end: 20211125
  18. ROSUVASTATIN [Concomitant]
     Active Substance: ROSUVASTATIN
     Indication: Hyperlipidaemia
     Dosage: 20 MG
     Route: 048
     Dates: start: 20200201
  19. TORSEMIDE [Concomitant]
     Active Substance: TORSEMIDE
     Indication: Cardiovascular disorder
     Dosage: 10 MG, QD
     Route: 048
     Dates: start: 2021, end: 2022
  20. URSODIOL [Concomitant]
     Active Substance: URSODIOL
     Indication: Abdominal discomfort
     Dosage: 500 MG, (1.5-0-1 OR 3X DAILY)
     Route: 048
     Dates: start: 20230104
  21. URSODIOL [Concomitant]
     Active Substance: URSODIOL
     Indication: Liver disorder
  22. HYDROCHLOROTHIAZIDE [Concomitant]
     Active Substance: HYDROCHLOROTHIAZIDE
     Indication: Diuretic therapy
     Dosage: 0.5 DOSAGE FORM, QD
     Route: 065
     Dates: start: 20220913, end: 20230104
  23. BEMPEDOIC ACID [Concomitant]
     Active Substance: BEMPEDOIC ACID
     Indication: Hyperlipidaemia
     Dosage: 180 MG
     Route: 048
     Dates: start: 20211125, end: 20220913
  24. TORSEMIDE [Concomitant]
     Active Substance: TORSEMIDE
     Indication: Product used for unknown indication
     Dosage: 10 MG, QD
     Route: 048
     Dates: end: 20230824

REACTIONS (10)
  - Campylobacter gastroenteritis [Recovered/Resolved]
  - Diarrhoea [Recovered/Resolved]
  - Dehydration [Recovered/Resolved]
  - Hypotension [Recovered/Resolved]
  - Cold sweat [Recovered/Resolved]
  - Nausea [Recovered/Resolved]
  - General physical health deterioration [Recovered/Resolved]
  - Dizziness [Recovered/Resolved]
  - Acute kidney injury [Recovered/Resolved]
  - Angina pectoris [Recovered/Resolved]

NARRATIVE: CASE EVENT DATE: 20230214
